FAERS Safety Report 8865925 (Version 1)
Quarter: 2012Q4

REPORT INFORMATION
  Report Type: 
  Country: US (occurrence: US)
  Receive Date: 20121025
  Receipt Date: 20121025
  Transmission Date: 20130627
  Serious: No
  Sender: FDA-Public Use
  Company Number: US-ABBOTT-12P-163-0934731-00

PATIENT
  Age: 41 None
  Sex: Female
  Weight: 61.29 kg

DRUGS (2)
  1. LUPRON DEPOT 3.75 MG [Suspect]
     Indication: ENDOMETRIOSIS
     Dates: start: 20120508
  2. MICRONOR [Concomitant]
     Indication: SUPPLEMENTATION THERAPY
     Dates: start: 20120427

REACTIONS (2)
  - Mood swings [Not Recovered/Not Resolved]
  - Hot flush [Not Recovered/Not Resolved]
